FAERS Safety Report 20747963 (Version 1)
Quarter: 2022Q2

REPORT INFORMATION
  Report Type: Spontaneous
  Country: CN (occurrence: CN)
  Receive Date: 20220425
  Receipt Date: 20220425
  Transmission Date: 20220721
  Serious: Yes (Hospitalization, Other)
  Sender: FDA-Public Use
  Company Number: CN-AMGEN-CHNSP2022069023

PATIENT
  Age: 35 Year
  Sex: Female

DRUGS (1)
  1. EPOETIN ALFA [Suspect]
     Active Substance: ERYTHROPOIETIN
     Indication: Anaemia prophylaxis
     Route: 065

REACTIONS (2)
  - Device related thrombosis [Recovered/Resolved]
  - Pulmonary embolism [Recovered/Resolved]
